FAERS Safety Report 22001092 (Version 1)
Quarter: 2023Q1

REPORT INFORMATION
  Report Type: Spontaneous
  Country: US (occurrence: None)
  Receive Date: 20230214
  Receipt Date: 20230214
  Transmission Date: 20230418
  Serious: No
  Sender: FDA-Public Use
  Company Number: None

PATIENT
  Sex: Female

DRUGS (1)
  1. KESIMPTA [Suspect]
     Active Substance: OFATUMUMAB
     Indication: Multiple sclerosis
     Dosage: FREQUENCY : MONTHLY;?
     Route: 058
     Dates: start: 202102

REACTIONS (5)
  - Device leakage [None]
  - Device malfunction [None]
  - Accidental exposure to product [None]
  - Asthenia [None]
  - Incorrect dose administered by device [None]
